FAERS Safety Report 5564520-9 (Version None)
Quarter: 2007Q4

REPORT INFORMATION
  Report Type: 
  Country: None (occurrence: None)
  Receive Date: 20071212
  Receipt Date: 20071128
  Transmission Date: 20080405
  Serious: Yes (Life-Threatening)
  Sender: FDA-Public Use
  Company Number: 2007S1012478

PATIENT
  Age: 53 Year
  Sex: Female

DRUGS (3)
  1. RAMIPRIL [Suspect]
     Dosage: 100 MG; X1; ORAL
     Route: 048
  2. METOPROLOL TARTRATE [Suspect]
     Dosage: 9.5 G; X1; ORAL
     Route: 048
  3. HYDROCHLOROTHIAZIDE [Suspect]
     Dosage: 500 MG,XL ORAL
     Route: 048

REACTIONS (7)
  - CARDIOGENIC SHOCK [None]
  - DRUG TOXICITY [None]
  - LOSS OF CONSCIOUSNESS [None]
  - PNEUMONIA [None]
  - RENAL FAILURE ACUTE [None]
  - SINUS BRADYCARDIA [None]
  - SUICIDE ATTEMPT [None]
